FAERS Safety Report 21657571 (Version 1)
Quarter: 2022Q4

REPORT INFORMATION
  Report Type: Spontaneous
  Country: GB (occurrence: GB)
  Receive Date: 20221129
  Receipt Date: 20221129
  Transmission Date: 20230112
  Serious: Yes (Other)
  Sender: FDA-Public Use
  Company Number: None

PATIENT
  Age: 44 Year
  Sex: Female
  Weight: 93 kg

DRUGS (9)
  1. ATORVASTATIN [Suspect]
     Active Substance: ATORVASTATIN
     Indication: Product used for unknown indication
     Dosage: 20 MILLIGRAM, HS
     Route: 065
     Dates: start: 20220607
  2. MELATONIN [Concomitant]
     Active Substance: MELATONIN
     Dosage: 1 DOSAGE FORM, PM (EARLY EVENING) (START DATE: 14-NOV-2022)
     Route: 065
  3. LORAZEPAM [Concomitant]
     Active Substance: LORAZEPAM
     Indication: Anxiety
     Dosage: TAKE 1 PRN.BEWARE ADDICTIVE AND STOPS WORKING IF TAKEN REGULARLY
     Route: 065
     Dates: start: 20221114
  4. MIRTAZAPINE [Concomitant]
     Active Substance: MIRTAZAPINE
     Dosage: 1 DOSAGE FORM, HS (AT NIGHT) (START DATE: 08-NOV-2022)
     Route: 065
  5. ORLISTAT [Concomitant]
     Active Substance: ORLISTAT
     Dosage: 1 DOSAGE FORM, TID (START DATE: 19-OCT-2022)
     Route: 065
     Dates: end: 20221116
  6. PROMETHAZINE HYDROCHLORIDE [Concomitant]
     Active Substance: PROMETHAZINE HYDROCHLORIDE
     Indication: Sleep disorder
     Dosage: ONE OR TWO AT NIGHT FOR SLEEP (START DATE: 19-OCT-2022)
     Route: 065
     Dates: end: 20221116
  7. QUETIAPINE [Concomitant]
     Active Substance: QUETIAPINE
     Dosage: 2 DOSAGE FORM, HS (AT NIGHT)
     Route: 065
     Dates: start: 20220411
  8. TRAZODONE [Concomitant]
     Active Substance: TRAZODONE HYDROCHLORIDE
     Dosage: USE AS DIRECTED (START DATE: 02-NOV-2022)
     Route: 065
     Dates: end: 20221103
  9. VENLAFAXINE HYDROCHLORIDE [Concomitant]
     Active Substance: VENLAFAXINE HYDROCHLORIDE
     Dosage: 2 DOSAGE FORM, QD (TAKE TWO DAILY)
     Route: 065
     Dates: start: 20220411

REACTIONS (1)
  - Depressed mood [Recovered/Resolved]

NARRATIVE: CASE EVENT DATE: 20220607
